FAERS Safety Report 10478696 (Version 1)
Quarter: 2014Q3

REPORT INFORMATION
  Report Type: Spontaneous
  Country: CA (occurrence: CA)
  Receive Date: 20140926
  Receipt Date: 20140926
  Transmission Date: 20150326
  Serious: Yes (Hospitalization)
  Sender: FDA-Public Use
  Company Number: PHHY2014CA121316

PATIENT
  Age: 55 Year
  Sex: Male

DRUGS (3)
  1. BOCEPREVIR [Suspect]
     Active Substance: BOCEPREVIR
     Indication: HEPATITIS C
     Dates: start: 201207, end: 201212
  2. PEGYLATED INTERFERON ALPHA NOS [Suspect]
     Active Substance: PEGINTERFERON ALFA-2A OR PEGINTERFERON ALFA-2B
     Indication: HEPATITIS C
     Dates: start: 201207, end: 201212
  3. RIBAVIRIN. [Suspect]
     Active Substance: RIBAVIRIN
     Indication: HEPATITIS C
     Dates: start: 201207, end: 201212

REACTIONS (7)
  - Disturbance in attention [Unknown]
  - Psychotic disorder [Recovered/Resolved]
  - Cognitive disorder [Not Recovered/Not Resolved]
  - Aphasia [Unknown]
  - Ammonia increased [Unknown]
  - Delusion [Unknown]
  - Memory impairment [Unknown]
